FAERS Safety Report 10584935 (Version 2)
Quarter: 2014Q4

REPORT INFORMATION
  Report Type: Spontaneous
  Country: FR (occurrence: FR)
  Receive Date: 20141114
  Receipt Date: 20141114
  Transmission Date: 20150529
  Serious: Yes (Hospitalization)
  Sender: FDA-Public Use
  Company Number: FR-BAXTER-2014BAX060171

PATIENT
  Age: 14 Year
  Sex: Male

DRUGS (20)
  1. DOXORUBICIN 200MG/100ML [Suspect]
     Active Substance: DOXORUBICIN
     Indication: EWING^S SARCOMA
     Dosage: 1ST DOSE
     Route: 042
     Dates: start: 20140626
  2. DOXORUBICIN 200MG/100ML [Suspect]
     Active Substance: DOXORUBICIN
     Route: 042
     Dates: end: 20140628
  3. EMEND [Suspect]
     Active Substance: APREPITANT
     Dosage: DAY 3
     Route: 048
     Dates: end: 20140628
  4. UROMITEXAN 5 G/50 ML, SOLUTION INJECTABLE POUR PERFUSION EN FLACON [Suspect]
     Active Substance: MESNA
     Indication: EWING^S SARCOMA
     Dosage: FOR 24 HOURS
     Route: 042
     Dates: start: 20140626
  5. CHLORURE DE SODIUM 0.9% POUR CENT BAXTER, SOLUTION POUR PERFUSION EN P [Suspect]
     Active Substance: SODIUM CHLORIDE
     Route: 042
     Dates: start: 20140627, end: 20140627
  6. ETOPOPHOS [Suspect]
     Active Substance: ETOPOSIDE PHOSPHATE
     Route: 042
     Dates: end: 20140628
  7. VINCRISTINE 2MG/2ML [Suspect]
     Active Substance: VINCRISTINE
     Indication: EWING^S SARCOMA
     Route: 042
     Dates: start: 20140626, end: 20140626
  8. NALBUPHINE [Suspect]
     Active Substance: NALBUPHINE
     Indication: PAIN
     Route: 042
     Dates: start: 20140627, end: 20140628
  9. ZOPHREN [Suspect]
     Active Substance: ONDANSETRON
     Indication: NAUSEA
     Route: 042
     Dates: start: 20140626, end: 20140628
  10. IFOSFAMIDE 2G/50ML [Suspect]
     Active Substance: IFOSFAMIDE
     Dosage: 2ND DOSE
     Route: 042
     Dates: start: 20140627, end: 20140627
  11. EMEND [Suspect]
     Active Substance: APREPITANT
     Dosage: DAY 2
     Route: 048
  12. CHLORURE DE SODIUM 0.9% POUR CENT BAXTER, SOLUTION POUR PERFUSION EN P [Suspect]
     Active Substance: SODIUM CHLORIDE
     Indication: MEDICATION DILUTION
     Route: 042
     Dates: start: 20140626, end: 20140626
  13. ETOPOPHOS [Suspect]
     Active Substance: ETOPOSIDE PHOSPHATE
     Indication: EWING^S SARCOMA
     Dosage: 1ST DOSE
     Route: 042
     Dates: start: 20140626
  14. ETOPOPHOS [Suspect]
     Active Substance: ETOPOSIDE PHOSPHATE
     Dosage: 2ND DOSE
     Route: 042
     Dates: start: 20140627
  15. EMEND [Suspect]
     Active Substance: APREPITANT
     Indication: NAUSEA
     Dosage: DAY 1
     Route: 048
     Dates: start: 20140626
  16. UROMITEXAN 5 G/50 ML, SOLUTION INJECTABLE POUR PERFUSION EN FLACON [Suspect]
     Active Substance: MESNA
     Dosage: OVER 12 HOURS
     Route: 042
     Dates: end: 20140627
  17. IFOSFAMIDE 2G/50ML [Suspect]
     Active Substance: IFOSFAMIDE
     Indication: EWING^S SARCOMA
     Dosage: 1ST DOSE
     Route: 042
     Dates: start: 20140626, end: 20140626
  18. PARACETAMOL B BRAUN [Suspect]
     Active Substance: ACETAMINOPHEN
     Indication: PAIN
     Route: 042
     Dates: start: 20140627, end: 20140627
  19. DOXORUBICIN 200MG/100ML [Suspect]
     Active Substance: DOXORUBICIN
     Dosage: 2ND DOSE
     Route: 042
     Dates: start: 20140627
  20. PLITICAN [Suspect]
     Active Substance: ALIZAPRIDE HYDROCHLORIDE
     Indication: NAUSEA
     Route: 042
     Dates: start: 20140626, end: 20140627

REACTIONS (3)
  - Palpitations [Recovering/Resolving]
  - Somnolence [Recovered/Resolved]
  - Tachycardia [Recovering/Resolving]

NARRATIVE: CASE EVENT DATE: 201406
